FAERS Safety Report 6763282-7 (Version None)
Quarter: 2010Q2

REPORT INFORMATION
  Report Type: 
  Country: None (occurrence: None)
  Receive Date: 20100608
  Receipt Date: 20100608
  Transmission Date: 20101027
  Serious: No
  Sender: FDA-Public Use
  Company Number: None

PATIENT
  Sex: Male
  Weight: 54 kg

DRUGS (6)
  1. CYCLOPHOSPHAMIDE [Suspect]
     Dosage: 3020 MG
     Dates: end: 20100416
  2. CYTARABINE [Suspect]
     Dosage: 1820 MG
     Dates: end: 20100426
  3. MERCAPTOPURINE [Suspect]
     Dosage: 1820 MG
     Dates: end: 20100429
  4. METHOTREXATE [Suspect]
     Dosage: 60 MG
     Dates: end: 20100409
  5. PEG-L ASPARAGINASE (PEGASPARGASE, ONCOSPAR) [Suspect]
     Dosage: 7550 IU
     Dates: end: 20100430
  6. VINCRISTINE SULFATE [Suspect]
     Dosage: 8 MG
     Dates: end: 20100507

REACTIONS (16)
  - ACTIVATED PARTIAL THROMBOPLASTIN TIME PROLONGED [None]
  - BLOOD BILIRUBIN INCREASED [None]
  - BLOOD GLUCOSE INCREASED [None]
  - DECREASED APPETITE [None]
  - DYSGEUSIA [None]
  - ENTEROVIRUS TEST POSITIVE [None]
  - HAEMOGLOBIN DECREASED [None]
  - HEART RATE INCREASED [None]
  - HUMAN RHINOVIRUS TEST POSITIVE [None]
  - NAUSEA [None]
  - NEUTROPENIA [None]
  - NEUTROPHIL COUNT ABNORMAL [None]
  - RESPIROVIRUS TEST POSITIVE [None]
  - SOMNOLENCE [None]
  - VOMITING [None]
  - WHITE BLOOD CELL COUNT DECREASED [None]
